FAERS Safety Report 4738778-X (Version None)
Quarter: 2005Q3

REPORT INFORMATION
  Report Type: 
  Country: None (occurrence: None)
  Receive Date: 20050804
  Receipt Date: 20050728
  Transmission Date: 20060218
  Serious: Yes (Hospitalization)
  Sender: FDA-Public Use
  Company Number: EM2005-0299

PATIENT
  Sex: 0

DRUGS (6)
  1. PROLEUKIN [Suspect]
     Indication: RENAL CELL CARCINOMA STAGE UNSPECIFIED
  2. INTERFERON ALFA(INTERFERON ALFA) [Suspect]
     Indication: RENAL CELL CARCINOMA STAGE UNSPECIFIED
  3. 5-FU(FLUOROURACIL) [Suspect]
     Indication: RENAL CELL CARCINOMA STAGE UNSPECIFIED
  4. DICLOFENAC (DICLOFENAC) [Concomitant]
  5. METOCLOPRAMIDE [Concomitant]
  6. CYCLIZINE (CYCLIZINE) [Concomitant]

REACTIONS (2)
  - ATRIAL FIBRILLATION [None]
  - HYPERTHYROIDISM [None]
